FAERS Safety Report 6310241-4 (Version None)
Quarter: 2009Q3

REPORT INFORMATION
  Report Type: 
  Country: None (occurrence: None)
  Receive Date: 20090810
  Receipt Date: 20090723
  Transmission Date: 20100115
  Serious: Yes (Other)
  Sender: FDA-Public Use
  Company Number: THQ2009A03866

PATIENT
  Age: 55 Year
  Sex: Male

DRUGS (5)
  1. PIOGLITAZONE HCL [Suspect]
     Dosage: 15 MG
     Route: 048
     Dates: end: 20090612
  2. BYETTA [Concomitant]
  3. LANTUS [Concomitant]
  4. AMARYL [Concomitant]
  5. LYRICA [Concomitant]

REACTIONS (2)
  - GLYCOSYLATED HAEMOGLOBIN INCREASED [None]
  - PANCREATITIS [None]
